FAERS Safety Report 22657250 (Version 1)
Quarter: 2023Q2

REPORT INFORMATION
  Report Type: Other
  Country: US (occurrence: None)
  Receive Date: 20230630
  Receipt Date: 20230630
  Transmission Date: 20230722
  Serious: Yes (Other)
  Sender: FDA-Public Use
  Company Number: US-ROCHE-3377233

PATIENT
  Age: 52 Year
  Sex: Female
  Weight: 51.756 kg

DRUGS (3)
  1. OCREVUS [Suspect]
     Active Substance: OCRELIZUMAB
     Indication: Relapsing-remitting multiple sclerosis
     Dosage: DATE OF TREATMENT: 08/AUG/2022
     Route: 042
     Dates: start: 201801
  2. LEXAPRO [Concomitant]
     Active Substance: ESCITALOPRAM OXALATE
     Indication: Anxiety
     Route: 048
     Dates: start: 2008
  3. GABAPENTIN [Concomitant]
     Active Substance: GABAPENTIN
     Indication: Neuralgia
     Dosage: STARTED 2 YEARS AGO.
     Route: 048

REACTIONS (2)
  - Urinary tract infection [Recovering/Resolving]
  - Kidney infection [Recovering/Resolving]

NARRATIVE: CASE EVENT DATE: 20230601
